FAERS Safety Report 9761570 (Version 1)
Quarter: 2013Q3

REPORT INFORMATION
  Report Type: Spontaneous
  Country: US (occurrence: None)
  Receive Date: 20130819
  Receipt Date: 20130819
  Transmission Date: 20140515
  Serious: Yes (Other)
  Sender: FDA-Public Use
  Company Number: KAMADA LTD MFR # 40514

PATIENT
  Age: 54 Year
  Sex: Female
  Weight: 54.43 kg

DRUGS (12)
  1. GLASSIA [Suspect]
     Indication: ALPHA-1 ANTI-TRYPSIN DEFICIENCY
     Dosage: 3000+/-10% WEEKLY IV
     Route: 042
     Dates: start: 201103
  2. RESTASIS [Concomitant]
  3. HYDROCORTIZONE ACETATE [Concomitant]
  4. B-12 SHOTS [Concomitant]
  5. TOPAMAX [Concomitant]
  6. CLONAZEPAM [Concomitant]
  7. WELLBUTRIN XL [Concomitant]
  8. ADVAIR 500/50 [Concomitant]
  9. MONTELUKAST [Concomitant]
  10. DETROL LA [Concomitant]
  11. WARFARIN [Concomitant]
  12. VITAMIN D [Concomitant]

REACTIONS (5)
  - Peripheral artery thrombosis [None]
  - International normalised ratio decreased [None]
  - Coagulopathy [None]
  - Deep vein thrombosis [None]
  - Thrombosis [None]
